FAERS Safety Report 19950891 (Version 3)
Quarter: 2022Q1

REPORT INFORMATION
  Report Type: Spontaneous
  Country: US (occurrence: US)
  Receive Date: 20211013
  Receipt Date: 20220203
  Transmission Date: 20220424
  Serious: Yes (Death, Other)
  Sender: FDA-Public Use
  Company Number: US-PFIZER INC-202100917826

PATIENT
  Age: 65 Year
  Sex: Female

DRUGS (1)
  1. IBRANCE [Suspect]
     Active Substance: PALBOCICLIB
     Indication: Neutropenia
     Dosage: 125 MG, CYCLIC (DAILY FOR 21 DAYS OFF 7)
     Dates: start: 20210626

REACTIONS (7)
  - Death [Fatal]
  - Off label use [Unknown]
  - Fatigue [Unknown]
  - Alopecia [Unknown]
  - Nausea [Recovered/Resolved]
  - Vomiting [Recovered/Resolved]
  - White blood cell count decreased [Unknown]
